FAERS Safety Report 8289524-7 (Version None)
Quarter: 2012Q2

REPORT INFORMATION
  Report Type: 
  Country: None (occurrence: None)
  Receive Date: 20120417
  Receipt Date: 20120411
  Transmission Date: 20120825
  Serious: Yes (Hospitalization)
  Sender: FDA-Public Use
  Company Number: FR-PFIZER INC-2012090027

PATIENT
  Age: 52 Year
  Sex: Female

DRUGS (2)
  1. CLINDAMYCIN HCL [Suspect]
     Indication: OSTEITIS
     Dosage: 300 MG 6 TIMES A DAY
     Route: 048
     Dates: start: 20120307, end: 20120317
  2. BACTRIM [Suspect]
     Indication: OSTEITIS
     Dosage: 1 DF, 6 TIMES A DAY
     Route: 048
     Dates: start: 20120307, end: 20120317

REACTIONS (2)
  - RASH [None]
  - PYREXIA [None]
